FAERS Safety Report 25727506 (Version 1)
Quarter: 2025Q3

REPORT INFORMATION
  Report Type: Spontaneous
  Country: US (occurrence: None)
  Receive Date: 20250826
  Receipt Date: 20250826
  Transmission Date: 20251021
  Serious: Yes (Other)
  Sender: FDA-CTU
  Company Number: None

PATIENT
  Age: 64 Year
  Sex: Male
  Weight: 99 kg

DRUGS (18)
  1. ADBRY [Suspect]
     Active Substance: TRALOKINUMAB-LDRM
  2. DESONIDE [Suspect]
     Active Substance: DESONIDE
  3. TRIAMCINOLONE [Suspect]
     Active Substance: TRIAMCINOLONE
  4. PROTOPIC [Suspect]
     Active Substance: TACROLIMUS
  5. Amlodipine besylate, [Concomitant]
  6. Ciclopirox solution, [Concomitant]
  7. Desonide Cream, [Concomitant]
  8. Fexofenadine HCL tablets, [Concomitant]
  9. Fluorometholone, [Concomitant]
  10. Fluoxetine HCL, [Concomitant]
  11. Gabapentine 300 MG capsule, [Concomitant]
  12. Ketoconazole 2 % cream, [Concomitant]
  13. Meclizine, [Concomitant]
  14. Omerprazole, [Concomitant]
  15. Pravastatin Sodium tablets, [Concomitant]
  16. VITAMIN D2 [Concomitant]
     Active Substance: ERGOCALCIFEROL
  17. Biotin, [Concomitant]
  18. B12 [Concomitant]

REACTIONS (6)
  - Pruritus [None]
  - Rash [None]
  - Sleep disorder [None]
  - Impaired driving ability [None]
  - Drug ineffective [None]
  - Product complaint [None]

NARRATIVE: CASE EVENT DATE: 20250819
